FAERS Safety Report 18452093 (Version 2)
Quarter: 2020Q4

REPORT INFORMATION
  Report Type: Spontaneous
  Country: US (occurrence: US)
  Receive Date: 20201102
  Receipt Date: 20201128
  Transmission Date: 20210114
  Serious: No
  Sender: FDA-Public Use
  Company Number: US-JNJFOC-20201048326

PATIENT
  Sex: Female

DRUGS (1)
  1. WOMENS ROGAINE UNSCENTED [Suspect]
     Active Substance: MINOXIDIL
     Indication: ALOPECIA
     Dosage: DOSE: 1/2 CAPFUL DAILY
     Route: 061
     Dates: start: 202010

REACTIONS (1)
  - Application site pruritus [Recovered/Resolved]

NARRATIVE: CASE EVENT DATE: 202010
